FAERS Safety Report 21593373 (Version 1)
Quarter: 2022Q4

REPORT INFORMATION
  Report Type: Report from Study
  Country: CA (occurrence: CA)
  Receive Date: 20221114
  Receipt Date: 20221114
  Transmission Date: 20230113
  Serious: Yes (Other)
  Sender: FDA-Public Use
  Company Number: CA-ABBVIE-4189613

PATIENT
  Sex: Female

DRUGS (1)
  1. HUMIRA [Suspect]
     Active Substance: ADALIMUMAB
     Indication: Crohn^s disease
     Route: 058
     Dates: start: 20120112

REACTIONS (5)
  - Developmental delay [Unknown]
  - Skin infection [Unknown]
  - Skin ulcer [Unknown]
  - Pain in extremity [Unknown]
  - Pain [Unknown]
